FAERS Safety Report 6017987-6 (Version None)
Quarter: 2008Q4

REPORT INFORMATION
  Report Type: 
  Country: None (occurrence: None)
  Receive Date: 20081223
  Receipt Date: 20081222
  Transmission Date: 20090506
  Serious: Yes (Death, Hospitalization)
  Sender: FDA-Public Use
  Company Number: A0761493A

PATIENT
  Age: 53 Year
  Sex: Female

DRUGS (10)
  1. LAMICTAL [Suspect]
     Indication: DRUG USE FOR UNKNOWN INDICATION
     Route: 048
  2. TYSABRI [Suspect]
     Indication: MULTIPLE SCLEROSIS
     Dosage: 300MG IN THE MORNING
     Route: 042
     Dates: start: 20080107, end: 20080811
  3. AVONEX [Concomitant]
  4. GEODON [Concomitant]
  5. CELEXA [Concomitant]
  6. UNSPECIFIED MEDICATION [Concomitant]
  7. VALIUM [Concomitant]
  8. ZANAFLEX [Concomitant]
  9. PRIMIDONE [Concomitant]
  10. METANX [Concomitant]

REACTIONS (6)
  - ACCIDENT [None]
  - DEATH [None]
  - HOSPITALISATION [None]
  - INJURY [None]
  - MENTAL DISORDER [None]
  - THERMAL BURN [None]
